FAERS Safety Report 23964582 (Version 1)
Quarter: 2024Q2

REPORT INFORMATION
  Report Type: Spontaneous
  Country: US (occurrence: US)
  Receive Date: 20240612
  Receipt Date: 20240612
  Transmission Date: 20240716
  Serious: Yes (Other)
  Sender: FDA-Public Use
  Company Number: US-STRIDES ARCOLAB LIMITED-2024SP006634

PATIENT
  Age: 1 Decade
  Sex: Female

DRUGS (10)
  1. METHOTREXATE [Suspect]
     Active Substance: METHOTREXATE
     Indication: Juvenile idiopathic arthritis
     Dosage: UNK
     Route: 065
  2. METHOTREXATE [Suspect]
     Active Substance: METHOTREXATE
     Indication: Osteolysis
  3. PAMIDRONATE [Concomitant]
     Active Substance: PAMIDRONATE DISODIUM
     Indication: Osteolysis
     Dosage: 0.5 MILLIGRAM/KILOGRAM
     Route: 042
  4. PAMIDRONATE [Concomitant]
     Active Substance: PAMIDRONATE DISODIUM
     Dosage: 1 MILLIGRAM/KILOGRAM (AT EVERY 6-8 WEEK INTERVALS)
     Route: 042
  5. TOCILIZUMAB [Concomitant]
     Active Substance: TOCILIZUMAB
     Indication: Juvenile idiopathic arthritis
     Dosage: UNK
     Route: 065
  6. ZOLEDRONIC ACID [Concomitant]
     Active Substance: ZOLEDRONIC ACID
     Indication: Osteolysis
     Dosage: 0.025 MILLIGRAM/KILOGRAM
     Route: 065
  7. ADALIMUMAB [Concomitant]
     Active Substance: ADALIMUMAB\ISOPROPYL ALCOHOL
     Indication: Juvenile idiopathic arthritis
     Dosage: UNK
     Route: 065
  8. PREDNISOLONE [Concomitant]
     Active Substance: PREDNISOLONE
     Indication: Juvenile idiopathic arthritis
     Dosage: UNK
     Route: 065
  9. TRIAMCINOLONE [Concomitant]
     Active Substance: TRIAMCINOLONE
     Indication: Juvenile idiopathic arthritis
     Dosage: UNK
     Route: 065
  10. NAPROXEN [Concomitant]
     Active Substance: NAPROXEN
     Indication: Product used for unknown indication
     Dosage: UNK
     Route: 065

REACTIONS (4)
  - Osteolysis [Recovered/Resolved]
  - Rebound effect [Recovered/Resolved]
  - Vomiting [Unknown]
  - Off label use [Unknown]
